FAERS Safety Report 5397692-X (Version None)
Quarter: 2007Q3

REPORT INFORMATION
  Report Type: 
  Country: None (occurrence: None)
  Receive Date: 20070723
  Receipt Date: 20070723
  Transmission Date: 20080115
  Serious: No
  Sender: FDA-Public Use
  Company Number: None

PATIENT
  Age: 50 Year
  Sex: Female
  Weight: 95.2554 kg

DRUGS (2)
  1. VYTORIN [Suspect]
     Indication: BLOOD CHOLESTEROL INCREASED
     Dosage: ONE TABLET DAILY PO
     Route: 048
     Dates: start: 20070718, end: 20070720
  2. VYTORIN [Suspect]
     Indication: BLOOD CHOLESTEROL INCREASED
     Dosage: ONE TABLET DAILY PO
     Route: 048
     Dates: start: 20070720, end: 20070720

REACTIONS (14)
  - CONTUSION [None]
  - FATIGUE [None]
  - GAIT DISTURBANCE [None]
  - IMPAIRED WORK ABILITY [None]
  - INFLUENZA LIKE ILLNESS [None]
  - INSOMNIA [None]
  - LIP SWELLING [None]
  - MYALGIA [None]
  - OEDEMA PERIPHERAL [None]
  - PHARMACEUTICAL PRODUCT COMPLAINT [None]
  - PHARYNGEAL OEDEMA [None]
  - PRURITUS [None]
  - RASH GENERALISED [None]
  - SOMNOLENCE [None]
